FAERS Safety Report 24738792 (Version 1)
Quarter: 2024Q4

REPORT INFORMATION
  Report Type: Spontaneous
  Country: GB (occurrence: GB)
  Receive Date: 20241216
  Receipt Date: 20241216
  Transmission Date: 20250115
  Serious: Yes (Other)
  Sender: TEVA
  Company Number: None

PATIENT
  Age: 24 Year
  Sex: Female

DRUGS (7)
  1. PREDNISOLONE [Suspect]
     Active Substance: PREDNISOLONE
     Indication: Product used for unknown indication
     Dosage: DAILY DOSE: 80 MG DAILY
     Route: 048
     Dates: start: 20241023
  2. PROPRANOLOL [Concomitant]
     Active Substance: PROPRANOLOL HYDROCHLORIDE
     Indication: Product used for unknown indication
     Dosage: EACH MORNING, DAILY DOSE: 80MG DAILY
     Route: 065
     Dates: start: 20240710
  3. CARBIMAZOLE [Concomitant]
     Active Substance: CARBIMAZOLE
     Indication: Product used for unknown indication
     Dosage: DAILY DOSE: 80 MG DAILY
     Route: 048
     Dates: start: 20241017
  4. IODINE [Concomitant]
     Active Substance: IODINE
     Indication: Product used for unknown indication
     Dosage: LUGOLS
     Route: 048
     Dates: start: 20241029
  5. CARBOMER [Concomitant]
     Active Substance: CARBOMER
     Indication: Product used for unknown indication
     Dosage: IN BOTH EYES, CLINITAS
     Route: 047
     Dates: start: 20231204
  6. ANTIHISTAMINES NOS [Concomitant]
     Active Substance: ANTIHISTAMINES NOS
     Indication: Product used for unknown indication
     Route: 065
  7. Hylo Night [Concomitant]
     Indication: Product used for unknown indication
     Dosage: APPLY 1 CM TO AFFECTED EYE (S) AT NIGH
     Route: 065

REACTIONS (1)
  - Psychiatric symptom [Unknown]
